FAERS Safety Report 11051727 (Version 1)
Quarter: 2015Q2

REPORT INFORMATION
  Report Type: Spontaneous
  Country: US (occurrence: US)
  Receive Date: 20150421
  Receipt Date: 20150421
  Transmission Date: 20150821
  Serious: No
  Sender: FDA-Public Use
  Company Number: US-ELI_LILLY_AND_COMPANY-US201503010776

PATIENT
  Sex: Female
  Weight: 59.86 kg

DRUGS (3)
  1. LANTUS [Concomitant]
     Active Substance: INSULIN GLARGINE
     Route: 065
  2. HUMALOG [Suspect]
     Active Substance: INSULIN LISPRO
     Indication: PRODUCT USED FOR UNKNOWN INDICATION
     Route: 058
  3. APIDRA [Concomitant]
     Active Substance: INSULIN GLULISINE
     Indication: BLOOD GLUCOSE INCREASED
     Route: 065

REACTIONS (1)
  - Blood glucose increased [Unknown]
